FAERS Safety Report 25177302 (Version 3)
Quarter: 2025Q2

REPORT INFORMATION
  Report Type: Spontaneous
  Country: CA (occurrence: CA)
  Receive Date: 20250409
  Receipt Date: 20250430
  Transmission Date: 20250717
  Serious: Yes (Hospitalization)
  Sender: CELLTRION
  Company Number: CA-PFIZER INC-202400051393

PATIENT

DRUGS (35)
  1. INFLECTRA [Suspect]
     Active Substance: INFLIXIMAB-DYYB
     Indication: Colitis ulcerative
     Route: 042
     Dates: start: 20210308, end: 20220920
  2. INFLECTRA [Suspect]
     Active Substance: INFLIXIMAB-DYYB
     Route: 042
     Dates: start: 20221129, end: 20240423
  3. INFLECTRA [Suspect]
     Active Substance: INFLIXIMAB-DYYB
     Route: 042
     Dates: start: 20231228
  4. INFLECTRA [Suspect]
     Active Substance: INFLIXIMAB-DYYB
     Route: 042
     Dates: start: 20240223
  5. INFLECTRA [Suspect]
     Active Substance: INFLIXIMAB-DYYB
     Route: 042
     Dates: start: 20240423, end: 20240423
  6. INFLECTRA [Suspect]
     Active Substance: INFLIXIMAB-DYYB
     Route: 042
     Dates: start: 20240604
  7. INFLECTRA [Suspect]
     Active Substance: INFLIXIMAB-DYYB
     Route: 042
     Dates: start: 20240718
  8. INFLECTRA [Suspect]
     Active Substance: INFLIXIMAB-DYYB
     Route: 042
     Dates: start: 20240830
  9. INFLECTRA [Suspect]
     Active Substance: INFLIXIMAB-DYYB
     Route: 042
     Dates: start: 20241122
  10. INFLECTRA [Suspect]
     Active Substance: INFLIXIMAB-DYYB
     Route: 042
     Dates: start: 20241122
  11. INFLECTRA [Suspect]
     Active Substance: INFLIXIMAB-DYYB
     Route: 042
     Dates: start: 20250104
  12. INFLECTRA [Suspect]
     Active Substance: INFLIXIMAB-DYYB
     Route: 042
     Dates: start: 20250104
  13. INFLECTRA [Suspect]
     Active Substance: INFLIXIMAB-DYYB
     Route: 042
     Dates: start: 20250214
  14. INFLECTRA [Suspect]
     Active Substance: INFLIXIMAB-DYYB
     Route: 042
     Dates: start: 20250214
  15. INFLECTRA [Suspect]
     Active Substance: INFLIXIMAB-DYYB
     Route: 042
     Dates: start: 20250214
  16. INFLECTRA [Suspect]
     Active Substance: INFLIXIMAB-DYYB
     Route: 042
     Dates: start: 20250329
  17. INFLECTRA [Suspect]
     Active Substance: INFLIXIMAB-DYYB
     Route: 042
     Dates: start: 20250329
  18. AMINOSALICYLIC ACID [Concomitant]
     Active Substance: AMINOSALICYLIC ACID
     Route: 048
  19. AZATHIOPRINE [Concomitant]
     Active Substance: AZATHIOPRINE
     Route: 048
  20. BETAHISTINE [Concomitant]
     Active Substance: BETAHISTINE
     Route: 048
  21. DIAZEPAM [Concomitant]
     Active Substance: DIAZEPAM
     Route: 048
  22. DULOXETINE [Concomitant]
     Active Substance: DULOXETINE
     Route: 048
  23. FUROSEMIDE [Concomitant]
     Active Substance: FUROSEMIDE
     Route: 048
  24. FOLIC ACID [Concomitant]
     Active Substance: FOLIC ACID
     Route: 048
  25. GABAPENTIN [Concomitant]
     Active Substance: GABAPENTIN
     Route: 048
  26. GLICLAZIDE [Concomitant]
     Active Substance: GLICLAZIDE
     Route: 048
  27. IMURAN [Concomitant]
     Active Substance: AZATHIOPRINE
     Route: 065
     Dates: start: 202004
  28. INSULIN NOS [Concomitant]
     Active Substance: INSULIN NOS
     Route: 058
  29. METHOTREXATE [Concomitant]
     Active Substance: METHOTREXATE
     Route: 058
  30. PANTOPRAZOLE [Concomitant]
     Active Substance: PANTOPRAZOLE
     Route: 048
  31. RAMIPRIL [Concomitant]
     Active Substance: RAMIPRIL
     Route: 048
  32. ROSUVASTATIN [Concomitant]
     Active Substance: ROSUVASTATIN
     Route: 048
  33. SOTALOL [Concomitant]
     Active Substance: SOTALOL
     Route: 048
  34. TRIMEBUTINE [Concomitant]
     Active Substance: TRIMEBUTINE
     Route: 048
  35. VITAMIN D NOS [Concomitant]
     Active Substance: CHOLECALCIFEROL\ERGOCALCIFEROL
     Route: 048

REACTIONS (26)
  - Pelvic pain [Recovered/Resolved]
  - Proctalgia [Recovered/Resolved]
  - Abdominal pain [Recovered/Resolved]
  - Penile pain [Recovered/Resolved]
  - Testicular pain [Recovered/Resolved]
  - Erythema [Recovered/Resolved]
  - Genital erythema [Recovered/Resolved]
  - Penile erythema [Recovered/Resolved]
  - Therapeutic response shortened [Unknown]
  - Drug ineffective [Unknown]
  - Cough [Recovering/Resolving]
  - Dyspnoea exertional [Recovering/Resolving]
  - Fatigue [Recovering/Resolving]
  - Asthenia [Unknown]
  - Somnolence [Unknown]
  - Thirst [Not Recovered/Not Resolved]
  - Arthritis [Unknown]
  - Gait disturbance [Unknown]
  - Poor venous access [Recovered/Resolved]
  - Infusion site extravasation [Recovered/Resolved]
  - Skin turgor decreased [Recovered/Resolved]
  - Dehydration [Unknown]
  - Condition aggravated [Recovering/Resolving]
  - Injection site pruritus [Recovered/Resolved]
  - Off label use [Unknown]
  - Inappropriate schedule of product administration [Unknown]

NARRATIVE: CASE EVENT DATE: 20240101
